FAERS Safety Report 5720377-4 (Version None)
Quarter: 2008Q2

REPORT INFORMATION
  Report Type: 
  Country: None (occurrence: None)
  Receive Date: 20080428
  Receipt Date: 20080416
  Transmission Date: 20081010
  Serious: Yes (Hospitalization, Other)
  Sender: FDA-Public Use
  Company Number: US-PFIZER INC-2008034100

PATIENT
  Age: 79 Year
  Sex: Male
  Weight: 68.181 kg

DRUGS (2)
  1. INSPRA [Suspect]
  2. INDAPAMIDE [Concomitant]

REACTIONS (3)
  - BLOOD SODIUM DECREASED [None]
  - PYREXIA [None]
  - UPPER RESPIRATORY TRACT INFECTION [None]
